FAERS Safety Report 13716793 (Version 1)
Quarter: 2017Q3

REPORT INFORMATION
  Report Type: Spontaneous
  Country: US (occurrence: US)
  Receive Date: 20170703
  Receipt Date: 20170703
  Transmission Date: 20171127
  Serious: Yes (Hospitalization)
  Sender: FDA-Public Use
  Company Number: None

PATIENT
  Age: 74 Year
  Sex: Male
  Weight: 52.65 kg

DRUGS (1)
  1. POTASSIUM PHOSPHATE 3MM/ML [Suspect]
     Active Substance: POTASSIUM PHOSPHATE
     Indication: PRODUCT USED FOR UNKNOWN INDICATION
     Dosage: 21 MMOLE; DAILY INTRAVENOUS DRIP?
     Route: 041
     Dates: start: 20170501, end: 20170601

REACTIONS (1)
  - Sepsis [None]

NARRATIVE: CASE EVENT DATE: 20170604
